FAERS Safety Report 6769228-X (Version None)
Quarter: 2010Q2

REPORT INFORMATION
  Report Type: 
  Country: None (occurrence: None)
  Receive Date: 20100615
  Receipt Date: 20100601
  Transmission Date: 20101027
  Serious: Yes (Other)
  Sender: FDA-Public Use
  Company Number: US-BAYER-200815917GPV

PATIENT

DRUGS (11)
  1. ALEMTUZUMAB [Suspect]
     Indication: HAEMATOLOGICAL MALIGNANCY
     Dosage: TOTAL DAILY DOSE: 3 MG  UNIT DOSE: 3 MG
     Route: 042
  2. ALEMTUZUMAB [Suspect]
     Dosage: TOTAL DAILY DOSE: 10 MG  UNIT DOSE: 10 MG
     Route: 042
  3. ALEMTUZUMAB [Suspect]
     Dosage: TOTAL DAILY DOSE: 30 MG  UNIT DOSE: 30 MG
     Route: 042
  4. ALEMTUZUMAB [Suspect]
     Dosage: TOTAL DAILY DOSE: 30 MG  UNIT DOSE: 30 MG
     Route: 042
  5. FLUDARABINE PHOSPHATE [Suspect]
     Indication: HAEMATOLOGICAL MALIGNANCY
     Dosage: TOTAL DAILY DOSE: 25 MG/M2  UNIT DOSE: 25 MG/M2
     Route: 042
  6. RITUXIMAB [Suspect]
     Indication: HAEMATOLOGICAL MALIGNANCY
     Dosage: TOTAL DAILY DOSE: 375 MG/M2  UNIT DOSE: 375 MG/M2
     Route: 042
  7. RITUXIMAB [Suspect]
     Dosage: TOTAL DAILY DOSE: 375 MG/M2  UNIT DOSE: 375 MG/M2
     Route: 042
  8. ACETAMINOPHEN [Concomitant]
     Indication: PREMEDICATION
     Dosage: TOTAL DAILY DOSE: 650 MG  UNIT DOSE: 650 MG
     Route: 048
  9. DIPHENHYDRAMINE [Concomitant]
     Indication: PREMEDICATION
     Dosage: ORALLY OR INTRAVENOUS; ADMINISTERED 30 MINUTES BEFORE INITIATING ALEMTUZUMAB INFUSION
  10. TRIMETHOPRIM + SULFAMETHOXAZOLE [Concomitant]
     Indication: INFECTION PROPHYLAXIS
     Dosage: 1 TABLET GIVEN TWICE DAILY 3 TIMES WEEKLY; CONTINUED FOR 2 MONTHS AFTER COMPLETION OF ALEMTUZUMAB
     Route: 048
  11. FAMCICLOVIR [Concomitant]
     Indication: PROPHYLAXIS
     Dosage: TOTAL DAILY DOSE: 500 MG

REACTIONS (1)
  - NEUROPATHY PERIPHERAL [None]
